FAERS Safety Report 4762657-5 (Version None)
Quarter: 2005Q3

REPORT INFORMATION
  Report Type: 
  Country: None (occurrence: None)
  Receive Date: 20050907
  Receipt Date: 20050830
  Transmission Date: 20060218
  Serious: Yes (Other)
  Sender: FDA-Public Use
  Company Number: 2005UW12993

PATIENT
  Age: 36 Year
  Sex: Female
  Weight: 81.8 kg

DRUGS (1)
  1. PRILOSEC OTC [Suspect]
     Indication: DYSPEPSIA
     Route: 048
     Dates: start: 20050630, end: 20050630

REACTIONS (5)
  - ABDOMINAL DISCOMFORT [None]
  - CONVULSION [None]
  - DRUG HYPERSENSITIVITY [None]
  - HYPERSENSITIVITY [None]
  - TREMOR [None]
